FAERS Safety Report 4510591-8 (Version None)
Quarter: 2004Q4

REPORT INFORMATION
  Report Type: 
  Country: None (occurrence: None)
  Receive Date: 20041119
  Receipt Date: 20040924
  Transmission Date: 20050328
  Serious: Yes (Death, Hospitalization)
  Sender: FDA-Public Use
  Company Number: 8915

PATIENT
  Age: 64 Year
  Sex: Male

DRUGS (1)
  1. METHOTREXATE [Suspect]
     Dosage: 35 MG

REACTIONS (5)
  - BRONCHOPULMONARY ASPERGILLOSIS [None]
  - LEUKOCYTOSIS [None]
  - MOUTH ULCERATION [None]
  - NEUTROPENIA [None]
  - PYREXIA [None]
